FAERS Safety Report 9072429 (Version 1)
Quarter: 2013Q1

REPORT INFORMATION
  Report Type: Spontaneous
  Country: US (occurrence: US)
  Receive Date: 20130207
  Receipt Date: 20130207
  Transmission Date: 20140127
  Serious: Yes (Other)
  Sender: FDA-Public Use
  Company Number: US-PFIZER INC-2013051240

PATIENT
  Age: 54 Year
  Sex: Female
  Weight: 86.17 kg

DRUGS (1)
  1. LIPITOR [Suspect]
     Indication: BLOOD CHOLESTEROL INCREASED
     Dosage: 40 MG, DAILY
     Dates: end: 201301

REACTIONS (4)
  - Road traffic accident [Unknown]
  - Contusion [Unknown]
  - Limb injury [Unknown]
  - Joint injury [Unknown]
